FAERS Safety Report 11008868 (Version 1)
Quarter: 2015Q2

REPORT INFORMATION
  Report Type: Other
  Country: GB (occurrence: GB)
  Receive Date: 20150410
  Receipt Date: 20150410
  Transmission Date: 20150821
  Serious: Yes (Other)
  Sender: FDA-Public Use
  Company Number: GB-MYLANLABS-2015M1010520

PATIENT

DRUGS (5)
  1. PROPOFOL. [Concomitant]
     Active Substance: PROPOFOL
     Indication: KNEE ARTHROPLASTY
     Dosage: UNK
  2. EPHEDRINE [Concomitant]
     Active Substance: EPHEDRINE
     Dosage: 6 MG, UNK
  3. ONDANSETRON [Suspect]
     Active Substance: ONDANSETRON
     Indication: PROPHYLAXIS OF NAUSEA AND VOMITING
     Dosage: 4 MG, UNK
     Route: 042
     Dates: start: 20150205, end: 20150205
  4. DEXAMETHASONE. [Concomitant]
     Active Substance: DEXAMETHASONE
     Dosage: 7.6 MG, UNK
  5. TRANEXAMIC ACID. [Concomitant]
     Active Substance: TRANEXAMIC ACID
     Dosage: 1 G, UNK

REACTIONS (2)
  - Hyporesponsive to stimuli [Recovered/Resolved]
  - Locked-in syndrome [Recovered/Resolved]

NARRATIVE: CASE EVENT DATE: 20150205
